FAERS Safety Report 17047967 (Version 1)
Quarter: 2019Q4

REPORT INFORMATION
  Report Type: Spontaneous
  Country: US (occurrence: US)
  Receive Date: 20191021
  Receipt Date: 20191021
  Transmission Date: 20200122
  Serious: No
  Sender: FDA-Public Use
  Company Number: None

PATIENT
  Age: 47 Year
  Sex: Female

DRUGS (1)
  1. BIKTARVY [Suspect]
     Active Substance: BICTEGRAVIR SODIUM\EMTRICITABINE\TENOFOVIR ALAFENAMIDE FUMARATE
     Dosage: ?          OTHER DOSE:50MG-200MG-25MG;?
     Route: 048
     Dates: start: 201909, end: 201909

REACTIONS (2)
  - Taste disorder [None]
  - Sensory disturbance [None]

NARRATIVE: CASE EVENT DATE: 20190930
